FAERS Safety Report 8328466-5 (Version None)
Quarter: 2012Q2

REPORT INFORMATION
  Report Type: 
  Country: None (occurrence: None)
  Receive Date: 20120502
  Receipt Date: 20120502
  Transmission Date: 20120825
  Serious: Yes (Other)
  Sender: FDA-Public Use
  Company Number: None

PATIENT

DRUGS (1)
  1. CIPROFLOXACIN HCL [Suspect]
     Indication: ANTIBIOTIC PROPHYLAXIS
     Dosage: |DOSAGETEXT: 400.0 MG||STRENGTH: 400 MG IV||FREQ: ONCE||ROUTE: INTRAVENOUS (NOT OTHERWISE SPECIFIED)
     Route: 042
     Dates: start: 20120501, end: 20120501

REACTIONS (3)
  - INFUSION SITE SWELLING [None]
  - INFUSION SITE ERYTHEMA [None]
  - INFUSION RELATED REACTION [None]
